FAERS Safety Report 11410374 (Version 1)
Quarter: 2015Q3

REPORT INFORMATION
  Report Type: Spontaneous
  Country: IT (occurrence: IT)
  Receive Date: 20150824
  Receipt Date: 20150824
  Transmission Date: 20151125
  Serious: Yes (Life-Threatening)
  Sender: FDA-Public Use
  Company Number: IT-JNJFOC-20150811104

PATIENT
  Age: 47 Year
  Sex: Male

DRUGS (9)
  1. ISENTRESS [Concomitant]
     Active Substance: RALTEGRAVIR POTASSIUM
     Route: 048
  2. DIBASE [Concomitant]
     Active Substance: CHOLECALCIFEROL
     Dosage: DIBASE 10,000 UI/MLFOR 40 DAYS
  3. PREZISTA [Concomitant]
     Active Substance: DARUNAVIR ETHANOLATE
     Dosage: PREZISTA 800 1 TAB
  4. RISPERDAL [Suspect]
     Active Substance: RISPERIDONE
     Indication: PRODUCT USED FOR UNKNOWN INDICATION
     Route: 048
     Dates: start: 20150723
  5. CARDIRENE [Concomitant]
     Active Substance: ASPIRIN DL-LYSINE
  6. EPIVIR [Concomitant]
     Active Substance: LAMIVUDINE
     Dosage: EPIVIR 300 1 TAB FOR SIX MONTHS
     Route: 048
  7. MONOKET [Concomitant]
     Active Substance: ISOSORBIDE MONONITRATE
     Dosage: MONOKET 60 1/3 TAB TID.
  8. TENORMIN [Concomitant]
     Active Substance: ATENOLOL
     Dosage: TENORMIN 100 1/4 TAB
  9. OLYSIO [Concomitant]
     Active Substance: SIMEPREVIR
     Dosage: SOVALDI 1 TAB/DAY + OLYSIO 1 TAB /DAY FOR 12 WEEKS STARTING ON 20-MAY
     Route: 048

REACTIONS (5)
  - Intentional overdose [Recovered/Resolved]
  - Sluggishness [Recovered/Resolved]
  - Impetigo [Unknown]
  - Sinus bradycardia [Unknown]
  - Hypotension [Recovered/Resolved]

NARRATIVE: CASE EVENT DATE: 20150723
